FAERS Safety Report 17641000 (Version 1)
Quarter: 2020Q2

REPORT INFORMATION
  Report Type: Spontaneous
  Country: US (occurrence: US)
  Receive Date: 20200407
  Receipt Date: 20200407
  Transmission Date: 20200713
  Serious: Yes (Other)
  Sender: FDA-Public Use
  Company Number: US-NAPPMUNDI-USA-2020-0151002

PATIENT
  Age: 56 Year
  Sex: Male

DRUGS (9)
  1. HYSINGLA ER [Suspect]
     Active Substance: HYDROCODONE BITARTRATE
     Indication: PAIN
     Dosage: UNK
     Route: 048
     Dates: start: 2017
  2. FENTANYL CITRATE. [Suspect]
     Active Substance: FENTANYL CITRATE
     Indication: PAIN
     Route: 062
  3. OXYCODONE HYDROCHLORIDE. [Suspect]
     Active Substance: OXYCODONE HYDROCHLORIDE
     Indication: PAIN
     Route: 048
  4. MS CONTIN [Suspect]
     Active Substance: MORPHINE SULFATE
     Indication: PAIN
     Route: 048
  5. MORPHINE [Suspect]
     Active Substance: MORPHINE
     Indication: PAIN
     Route: 065
  6. HYDROCODONE BITARTRATE/ACETAMINOPHEN [Suspect]
     Active Substance: ACETAMINOPHEN\HYDROCODONE BITARTRATE
     Indication: PAIN
     Dosage: 10/325 MG UNK
     Route: 048
     Dates: start: 2017
  7. OXYCONTIN [Suspect]
     Active Substance: OXYCODONE HYDROCHLORIDE
     Indication: PAIN
     Dosage: 6 TIMES DAILY, UNK
     Route: 048
     Dates: start: 201802, end: 201809
  8. OPANA [Suspect]
     Active Substance: OXYMORPHONE HYDROCHLORIDE
     Indication: PAIN
     Route: 048
  9. BOTOX [Suspect]
     Active Substance: ONABOTULINUMTOXINA
     Indication: PRODUCT USED FOR UNKNOWN INDICATION
     Dosage: UNK, INJECTION
     Route: 050
     Dates: start: 201909

REACTIONS (11)
  - Device ineffective [Not Recovered/Not Resolved]
  - Gastrointestinal disorder [Unknown]
  - Off label use [Unknown]
  - Tooth loss [Unknown]
  - Malaise [Unknown]
  - Gastrooesophageal reflux disease [Not Recovered/Not Resolved]
  - Unevaluable event [Unknown]
  - Drug dependence [Unknown]
  - Dyspepsia [Unknown]
  - Drug level increased [Unknown]
  - Impaired work ability [Unknown]

NARRATIVE: CASE EVENT DATE: 2016
